FAERS Safety Report 21204065 (Version 2)
Quarter: 2022Q3

REPORT INFORMATION
  Report Type: Spontaneous
  Country: RU (occurrence: RU)
  Receive Date: 20220812
  Receipt Date: 20220826
  Transmission Date: 20221027
  Serious: Yes (Hospitalization, Other)
  Sender: FDA-Public Use
  Company Number: RU-ORGANON-O2208RUS000783

PATIENT
  Sex: Female

DRUGS (2)
  1. DIPROSPAN [Interacting]
     Active Substance: BETAMETHASONE DIPROPIONATE\BETAMETHASONE SODIUM PHOSPHATE
     Indication: Osteoarthritis
     Dosage: RECEIVED 3 COMBINED INJECTIONS IN ONE KNEE AND 3 MORE IN THE OTHER (6 COMBINED INJECTIONS IN TOTAL),
     Route: 014
     Dates: start: 202206, end: 20220701
  2. GLYCOSAMINOGLYCANS [Interacting]
     Active Substance: GLYCOSAMINOGLYCANS
     Dosage: UNK
     Dates: start: 2022, end: 2022

REACTIONS (2)
  - Deep vein thrombosis [Not Recovered/Not Resolved]
  - Drug interaction [Unknown]

NARRATIVE: CASE EVENT DATE: 20220101
